FAERS Safety Report 9353511 (Version 1)
Quarter: 2013Q2

REPORT INFORMATION
  Report Type: Spontaneous
  Country: US (occurrence: US)
  Receive Date: 20130618
  Receipt Date: 20130618
  Transmission Date: 20140414
  Serious: Yes (Hospitalization, Other)
  Sender: FDA-Public Use
  Company Number: US-ELI_LILLY_AND_COMPANY-US201306003687

PATIENT
  Age: 80 Year
  Sex: Male
  Weight: 89.8 kg

DRUGS (4)
  1. ADCIRCA [Suspect]
     Indication: PULMONARY ARTERIAL HYPERTENSION
     Dosage: 40 MG, UNK
     Dates: start: 20101022
  2. PREDNISONE [Concomitant]
     Indication: CONNECTIVE TISSUE DISORDER
     Dosage: 10 MG, UNK
     Route: 048
  3. PREDNISONE [Concomitant]
     Dosage: 30 MG, UNK
     Dates: start: 20121121
  4. LETAIRIS [Concomitant]
     Dosage: 10 MG, UNK
     Dates: start: 20120210

REACTIONS (2)
  - Pneumonia [Recovered/Resolved]
  - Hypogammaglobulinaemia [Unknown]
